FAERS Safety Report 15773255 (Version 4)
Quarter: 2020Q1

REPORT INFORMATION
  Report Type: Other
  Country: US (occurrence: US)
  Receive Date: 20181228
  Receipt Date: 20200325
  Transmission Date: 20200409
  Serious: Yes (Hospitalization)
  Sender: FDA-Public Use
  Company Number: US-VERASTEM-2018-00074

PATIENT

DRUGS (2)
  1. COPIKTRA [Suspect]
     Active Substance: DUVELISIB
     Indication: CHRONIC LYMPHOCYTIC LEUKAEMIA
     Dosage: 25 MG, BID
     Route: 048
     Dates: start: 20181101
  2. CHEMOTHERAPEUTICS [Concomitant]
     Active Substance: UNSPECIFIED INGREDIENT
     Indication: PRODUCT USED FOR UNKNOWN INDICATION

REACTIONS (28)
  - White blood cell count increased [Not Recovered/Not Resolved]
  - Colitis [Unknown]
  - Rhinorrhoea [Unknown]
  - Perineal pain [Not Recovered/Not Resolved]
  - Genital rash [Unknown]
  - Micturition urgency [Not Recovered/Not Resolved]
  - Hospitalisation [Not Recovered/Not Resolved]
  - Excessive cerumen production [Unknown]
  - Fatigue [Unknown]
  - Weight decreased [Unknown]
  - Oropharyngeal pain [Unknown]
  - Pain in extremity [Not Recovered/Not Resolved]
  - Night sweats [Unknown]
  - Vulvovaginal discomfort [Unknown]
  - Dizziness postural [Not Recovered/Not Resolved]
  - Oral pain [Unknown]
  - Sleep disorder [Unknown]
  - Diarrhoea [Recovering/Resolving]
  - Headache [Unknown]
  - Grip strength decreased [Not Recovered/Not Resolved]
  - Decreased appetite [Not Recovered/Not Resolved]
  - Abdominal discomfort [Recovered/Resolved]
  - Dysphonia [Unknown]
  - Dysuria [Not Recovered/Not Resolved]
  - Fatigue [Unknown]
  - Depression [Unknown]
  - Malaise [Unknown]
  - Arthralgia [Not Recovered/Not Resolved]

NARRATIVE: CASE EVENT DATE: 20181104
